FAERS Safety Report 8908311 (Version 2)
Quarter: 2012Q4

REPORT INFORMATION
  Report Type: Report from Study
  Country: US (occurrence: US)
  Receive Date: 20121114
  Receipt Date: 20121121
  Transmission Date: 20130627
  Serious: Yes (Hospitalization)
  Sender: FDA-Public Use
  Company Number: US-JNJFOC-20121105082

PATIENT
  Age: 13 Year
  Sex: Female
  Weight: 37.9 kg

DRUGS (7)
  1. REMICADE [Suspect]
     Indication: CROHN^S DISEASE
     Route: 042
  2. REMICADE [Suspect]
     Indication: CROHN^S DISEASE
     Route: 042
     Dates: start: 20111111
  3. PREDNISONE [Concomitant]
  4. IRON [Concomitant]
  5. CALCIUM [Concomitant]
  6. VITAMIN D [Concomitant]
  7. OMEPRAZOLE [Concomitant]

REACTIONS (2)
  - Crohn^s disease [Recovered/Resolved]
  - Anaemia [Recovered/Resolved]
